FAERS Safety Report 17980245 (Version 32)
Quarter: 2024Q4

REPORT INFORMATION
  Report Type: Report from Study
  Country: US (occurrence: US)
  Receive Date: 20200703
  Receipt Date: 20241024
  Transmission Date: 20250115
  Serious: Yes (Death, Hospitalization, Other)
  Sender: TAKEDA
  Company Number: US-SHIRE-US202021434

PATIENT
  Age: 62 Year
  Sex: Female
  Weight: 84 kg

DRUGS (69)
  1. HUMAN IMMUNOGLOBULIN G [Suspect]
     Active Substance: HUMAN IMMUNOGLOBULIN G
     Indication: Immunodeficiency common variable
     Dosage: 60 GRAM
     Route: 042
     Dates: start: 20131002
  2. HUMAN IMMUNOGLOBULIN G [Suspect]
     Active Substance: HUMAN IMMUNOGLOBULIN G
     Dosage: 60 GRAM, 4/WEEK
     Route: 042
  3. HUMAN IMMUNOGLOBULIN G [Suspect]
     Active Substance: HUMAN IMMUNOGLOBULIN G
     Dosage: 60 GRAM, Q4WEEKS
     Route: 042
     Dates: start: 20131021
  4. HUMAN IMMUNOGLOBULIN G [Suspect]
     Active Substance: HUMAN IMMUNOGLOBULIN G
     Dosage: 60 GRAM, Q4WEEKS
     Route: 042
  5. HUMAN IMMUNOGLOBULIN G [Suspect]
     Active Substance: HUMAN IMMUNOGLOBULIN G
     Dosage: 60 GRAM, 4/WEEK
     Route: 042
     Dates: start: 20150319
  6. HUMAN IMMUNOGLOBULIN G [Suspect]
     Active Substance: HUMAN IMMUNOGLOBULIN G
     Dosage: 60 GRAM
     Route: 042
  7. HUMAN IMMUNOGLOBULIN G [Suspect]
     Active Substance: HUMAN IMMUNOGLOBULIN G
     Dosage: 60 GRAM, Q4WEEKS
     Route: 042
  8. HUMAN IMMUNOGLOBULIN G [Suspect]
     Active Substance: HUMAN IMMUNOGLOBULIN G
     Dosage: 60 GRAM, Q4WEEKS
     Route: 042
  9. HUMAN IMMUNOGLOBULIN G [Suspect]
     Active Substance: HUMAN IMMUNOGLOBULIN G
     Dosage: 60 GRAM
     Route: 042
  10. AUGMENTIN [Suspect]
     Active Substance: AMOXICILLIN\CLAVULANATE POTASSIUM
     Indication: Product used for unknown indication
     Dosage: UNK
     Route: 065
  11. LEVOFLOXACIN [Suspect]
     Active Substance: LEVOFLOXACIN
     Indication: Product used for unknown indication
     Dosage: UNK
     Route: 065
  12. EPINEPHRINE [Concomitant]
     Active Substance: EPINEPHRINE
     Indication: Product used for unknown indication
     Dosage: UNK
     Route: 065
  13. ACETAMINOPHEN [Concomitant]
     Active Substance: ACETAMINOPHEN
     Indication: Product used for unknown indication
     Dosage: UNK
     Route: 065
  14. Omega [Concomitant]
     Dosage: UNK
     Route: 065
  15. ROPINIROLE HYDROCHLORIDE [Concomitant]
     Active Substance: ROPINIROLE HYDROCHLORIDE
     Dosage: UNK
     Route: 065
  16. FUROSEMIDE [Concomitant]
     Active Substance: FUROSEMIDE
     Indication: Product used for unknown indication
     Dosage: UNK
     Route: 065
  17. AMLODIPINE BESYLATE [Concomitant]
     Active Substance: AMLODIPINE BESYLATE
     Dosage: UNK
     Route: 065
  18. EFFEXOR [Concomitant]
     Active Substance: VENLAFAXINE HYDROCHLORIDE
     Indication: Product used for unknown indication
     Dosage: UNK
     Route: 065
  19. SINGULAIR [Concomitant]
     Active Substance: MONTELUKAST SODIUM
     Dosage: UNK
     Route: 065
  20. ZINC [Concomitant]
     Active Substance: ZINC
     Dosage: UNK
     Route: 065
  21. VITAMIN B COMPLEX [Concomitant]
     Active Substance: CYANOCOBALAMIN\DEXPANTHENOL\NIACINAMIDE\PYRIDOXINE HYDROCHLORIDE\RIBOFLAVIN 5^-PHOSPHATE SODIUM\THIA
     Dosage: UNK
     Route: 065
  22. SODIUM CHLORIDE [Concomitant]
     Active Substance: SODIUM CHLORIDE
     Indication: Product used for unknown indication
     Dosage: UNK
     Route: 065
  23. CALCIUM\CHOLECALCIFEROL [Concomitant]
     Active Substance: CALCIUM\CHOLECALCIFEROL
     Indication: Product used for unknown indication
     Dosage: UNK
     Route: 065
  24. VITAMIN D3 [Concomitant]
     Active Substance: CHOLECALCIFEROL
     Indication: Product used for unknown indication
     Dosage: UNK
     Route: 065
  25. MUPIROCIN [Concomitant]
     Active Substance: MUPIROCIN
     Indication: Product used for unknown indication
     Dosage: UNK
     Route: 065
  26. LIDOCAINE [Concomitant]
     Active Substance: LIDOCAINE
     Dosage: UNK
     Route: 065
  27. BENZONATATE [Concomitant]
     Active Substance: BENZONATATE
     Indication: Product used for unknown indication
     Dosage: UNK
     Route: 065
  28. METOPROLOL SUCCINATE [Concomitant]
     Active Substance: METOPROLOL SUCCINATE
     Dosage: UNK
     Route: 065
  29. RESTASIS [Concomitant]
     Active Substance: CYCLOSPORINE
     Indication: Product used for unknown indication
     Dosage: UNK
     Route: 065
  30. SUMATRIPTAN SUCCINATE [Concomitant]
     Active Substance: SUMATRIPTAN SUCCINATE
     Dosage: UNK
     Route: 065
  31. SYMBICORT [Concomitant]
     Active Substance: BUDESONIDE\FORMOTEROL FUMARATE DIHYDRATE
     Indication: Product used for unknown indication
     Dosage: UNK
     Route: 065
  32. MAGNESIUM [Concomitant]
     Active Substance: MAGNESIUM
     Dosage: UNK
     Route: 065
  33. LIDOCAINE AND PRILOCAINE [Concomitant]
     Active Substance: LIDOCAINE\PRILOCAINE
     Indication: Product used for unknown indication
     Dosage: UNK
     Route: 065
  34. SPIRONOLACTONE [Concomitant]
     Active Substance: SPIRONOLACTONE
     Dosage: UNK
     Route: 065
  35. DIPHENHYDRAMINE HYDROCHLORIDE [Concomitant]
     Active Substance: DIPHENHYDRAMINE HYDROCHLORIDE
     Dosage: UNK
     Route: 065
  36. OMEPRAZOLE [Concomitant]
     Active Substance: OMEPRAZOLE
     Dosage: UNK
     Route: 065
  37. DOCUSATE SODIUM [Concomitant]
     Active Substance: DOCUSATE SODIUM
     Dosage: UNK
  38. CETIRIZINE HCL [Concomitant]
     Active Substance: CETIRIZINE HYDROCHLORIDE
     Dosage: UNK
     Route: 065
  39. SOLU-MEDROL [Concomitant]
     Active Substance: METHYLPREDNISOLONE SODIUM SUCCINATE
     Indication: Product used for unknown indication
     Dosage: UNK
     Route: 065
  40. FERROUS SULFATE [Concomitant]
     Active Substance: FERROUS SULFATE
     Dosage: UNK
     Route: 065
  41. ASPIRIN [Concomitant]
     Active Substance: ASPIRIN
     Dosage: UNK
     Route: 065
  42. DIPHENHYDRAMINE [Concomitant]
     Active Substance: DIPHENHYDRAMINE
     Indication: Product used for unknown indication
     Dosage: UNK
     Route: 065
  43. METOPROLOL [Concomitant]
     Active Substance: METOPROLOL
     Indication: Product used for unknown indication
     Dosage: UNK
     Route: 065
  44. ELETRIPTAN [Concomitant]
     Active Substance: ELETRIPTAN
     Indication: Product used for unknown indication
     Dosage: UNK
     Route: 065
  45. LISINOPRIL [Concomitant]
     Active Substance: LISINOPRIL
     Indication: Product used for unknown indication
     Dosage: UNK
     Route: 065
  46. DOK [Concomitant]
     Active Substance: DOCUSATE SODIUM
     Indication: Product used for unknown indication
     Dosage: UNK
     Route: 065
  47. CETIRIZINE [Concomitant]
     Active Substance: CETIRIZINE HYDROCHLORIDE
     Indication: Product used for unknown indication
     Dosage: UNK
     Route: 065
  48. BENTYL [Concomitant]
     Active Substance: DICYCLOMINE HYDROCHLORIDE
     Indication: Product used for unknown indication
     Dosage: UNK
     Route: 065
  49. B50 COMPLEX [Concomitant]
     Indication: Product used for unknown indication
     Dosage: UNK
     Route: 065
  50. FLUTICASONE [Concomitant]
     Active Substance: FLUTICASONE
     Indication: Product used for unknown indication
     Dosage: UNK
     Route: 065
  51. SUDOGEST [Concomitant]
     Active Substance: PSEUDOEPHEDRINE HYDROCHLORIDE
     Indication: Product used for unknown indication
     Dosage: UNK
     Route: 065
  52. TESSALON [Concomitant]
     Active Substance: BENZONATATE
     Indication: Product used for unknown indication
     Dosage: UNK
     Route: 065
  53. FLUBLOK [Concomitant]
     Active Substance: INFLUENZA A VIRUS A/CALIFORNIA/7/2009 (H1N1) RECOMBINANT HEMAGGLUTININ ANTIGEN\INFLUENZA A VIRUS A/V
     Dosage: UNK
     Route: 065
  54. SUPER B 50 COMPLEX [Concomitant]
     Dosage: UNK
     Route: 065
  55. TRELEGY ELLIPTA [Concomitant]
     Active Substance: FLUTICASONE FUROATE\UMECLIDINIUM BROMIDE\VILANTEROL TRIFENATATE
     Dosage: UNK
     Route: 065
  56. SODIUM SUCCINATE [Concomitant]
     Active Substance: SODIUM SUCCINATE HEXAHYDRATE
     Dosage: UNK
     Route: 065
  57. OMEGA 3 [Concomitant]
     Active Substance: CAPSAICIN
     Dosage: UNK
     Route: 065
  58. SULFAMETHOXAZOLE AND TRIMETHOPRIM [Concomitant]
     Active Substance: SULFAMETHOXAZOLE\TRIMETHOPRIM
     Dosage: UNK
     Route: 065
  59. AMOXICILLIN\CLAVULANATE POTASSIUM [Concomitant]
     Active Substance: AMOXICILLIN\CLAVULANATE POTASSIUM
     Indication: Product used for unknown indication
     Dosage: UNK
     Route: 065
  60. HYDROCHLOROTHIAZIDE [Concomitant]
     Active Substance: HYDROCHLOROTHIAZIDE
     Dosage: UNK
     Route: 065
  61. CHLORTHALIDONE [Concomitant]
     Active Substance: CHLORTHALIDONE
     Dosage: UNK
     Route: 065
  62. VARENICLINE TARTRATE [Concomitant]
     Active Substance: VARENICLINE TARTRATE
     Dosage: UNK
     Route: 065
  63. SOLU-MEDROL [Concomitant]
     Active Substance: METHYLPREDNISOLONE SODIUM SUCCINATE
     Dosage: UNK
     Route: 065
  64. KLOR CON M [Concomitant]
     Active Substance: POTASSIUM CHLORIDE
     Dosage: UNK
     Route: 065
  65. SYMBICORT [Concomitant]
     Active Substance: BUDESONIDE\FORMOTEROL FUMARATE DIHYDRATE
     Dosage: UNK
     Route: 065
  66. SUMATRIPTAN [Concomitant]
     Active Substance: SUMATRIPTAN
     Dosage: UNK
     Route: 065
  67. LIDOCAINE [Concomitant]
     Active Substance: LIDOCAINE
  68. DILTIAZEM [Concomitant]
     Active Substance: DILTIAZEM
     Dosage: UNK
     Route: 065
  69. FAMOTIDINE [Concomitant]
     Active Substance: FAMOTIDINE
     Dosage: UNK
     Route: 065

REACTIONS (40)
  - Death [Fatal]
  - Pneumonia [Unknown]
  - Colitis [Unknown]
  - Cardiac failure congestive [Unknown]
  - Upper respiratory tract infection [Not Recovered/Not Resolved]
  - Pulmonary hypertension [Unknown]
  - Cellulitis [Unknown]
  - Colitis ulcerative [Unknown]
  - Gastrointestinal haemorrhage [Unknown]
  - Renal cancer [Unknown]
  - Type 2 diabetes mellitus [Unknown]
  - Renal failure [Unknown]
  - Incorrect drug administration rate [Unknown]
  - Lymph node pain [Unknown]
  - Arthropod bite [Unknown]
  - Ear infection [Unknown]
  - Swollen tongue [Unknown]
  - Drug hypersensitivity [Unknown]
  - Infection [Unknown]
  - Paranasal sinus discomfort [Unknown]
  - Purulent discharge [Unknown]
  - Gingival erythema [Unknown]
  - Product dose omission issue [Unknown]
  - Renal cyst [Unknown]
  - Oral infection [Unknown]
  - Sinusitis [Unknown]
  - Influenza [Unknown]
  - Pain [Unknown]
  - Blood urea increased [Unknown]
  - Blood creatinine increased [Unknown]
  - Pyrexia [Unknown]
  - Feeling hot [Unknown]
  - Erythema [Unknown]
  - Swelling [Unknown]
  - Lymphadenopathy [Unknown]
  - Hypertension [Not Recovered/Not Resolved]
  - Back pain [Unknown]
  - Migraine [Unknown]
  - Diarrhoea [Unknown]
  - Headache [Unknown]

NARRATIVE: CASE EVENT DATE: 20210223
